FAERS Safety Report 14968645 (Version 2)
Quarter: 2018Q3

REPORT INFORMATION
  Report Type: Report from Study
  Country: IT (occurrence: IT)
  Receive Date: 20180604
  Receipt Date: 20180706
  Transmission Date: 20181010
  Serious: Yes (Hospitalization)
  Sender: FDA-Public Use
  Company Number: IT-PFIZER INC-2018220066

PATIENT
  Age: 28 Year
  Sex: Female

DRUGS (3)
  1. DELORAZEPAM [Suspect]
     Active Substance: DELORAZEPAM
     Indication: ANXIETY
     Dosage: UNK
     Dates: start: 20170628, end: 20170628
  2. SOLU?MEDROL [Suspect]
     Active Substance: METHYLPREDNISOLONE SODIUM SUCCINATE
     Indication: ERYTHEMA
     Dosage: UNK
     Dates: start: 20170628, end: 20170628
  3. TRIMETON [Suspect]
     Active Substance: CHLORPHENIRAMINE MALEATE
     Indication: FOOD ALLERGY
     Dosage: UNK
     Dates: start: 20170626

REACTIONS (3)
  - Sinus tachycardia [Recovered/Resolved]
  - Erythema [Recovered/Resolved]
  - Palpitations [Recovered/Resolved]

NARRATIVE: CASE EVENT DATE: 20170628
